FAERS Safety Report 13512605 (Version 2)
Quarter: 2017Q2

REPORT INFORMATION
  Report Type: Report from Study
  Country: GB (occurrence: GB)
  Receive Date: 20170504
  Receipt Date: 20170519
  Transmission Date: 20170830
  Serious: Yes (Life-Threatening, Other)
  Sender: FDA-Public Use
  Company Number: GB-BEH-2017079919

PATIENT
  Age: 45 Year
  Sex: Male

DRUGS (2)
  1. RIASTAP [Suspect]
     Active Substance: FIBRINOGEN HUMAN
     Indication: TRAUMATIC HAEMORRHAGE
     Dosage: UNK
     Route: 065
     Dates: start: 20161023
  2. BLINDED PLACEBO [Suspect]
     Active Substance: INVESTIGATIONAL PRODUCT
     Indication: TRAUMATIC HAEMORRHAGE
     Dosage: UNK
     Route: 065
     Dates: start: 20161023

REACTIONS (4)
  - Ischaemic cerebral infarction [Not Recovered/Not Resolved]
  - Neutropenia [Recovered/Resolved]
  - Coma scale abnormal [Not Recovered/Not Resolved]
  - Cardiovascular disorder [Not Recovered/Not Resolved]

NARRATIVE: CASE EVENT DATE: 20161023
